FAERS Safety Report 19500693 (Version 1)
Quarter: 2021Q3

REPORT INFORMATION
  Report Type: Other
  Country: US (occurrence: US)
  Receive Date: 20210706
  Receipt Date: 20210706
  Transmission Date: 20211014
  Serious: Yes (Hospitalization)
  Sender: FDA-Public Use
  Company Number: US-ROCHE-2863450

PATIENT
  Age: 47 Year
  Sex: Female

DRUGS (3)
  1. TRILEPTAL [Concomitant]
     Active Substance: OXCARBAZEPINE
     Dosage: NIGHTLY
  2. BACLOFEN. [Suspect]
     Active Substance: BACLOFEN
     Indication: STIFF PERSON SYNDROME
     Dosage: NIGHTLY
     Route: 065
  3. DIAZEPAM. [Suspect]
     Active Substance: DIAZEPAM
     Indication: STIFF PERSON SYNDROME
     Route: 065

REACTIONS (1)
  - Acute respiratory failure [Recovering/Resolving]
